FAERS Safety Report 9503080 (Version 2)
Quarter: 2014Q2

REPORT INFORMATION
  Report Type: Spontaneous
  Country: US (occurrence: US)
  Receive Date: 20130906
  Receipt Date: 20140428
  Transmission Date: 20141212
  Serious: Yes (Congenital Anomaly, Other)
  Sender: FDA-Public Use
  Company Number: US-PFIZER INC-2013255645

PATIENT
  Sex: Female

DRUGS (6)
  1. ZOLOFT [Suspect]
     Indication: DEPRESSION
     Dosage: UNK
     Route: 064
     Dates: start: 200308, end: 200502
  2. TRIMOX [Concomitant]
     Dosage: UNK
     Route: 064
  3. OXYCODONE [Concomitant]
     Dosage: UNK
     Route: 064
  4. ALBUTEROL [Concomitant]
     Dosage: UNK
     Route: 064
  5. AMOXICILLIN [Concomitant]
     Dosage: UNK
     Route: 064
  6. NATATAB [Concomitant]
     Dosage: UNK
     Route: 064

REACTIONS (6)
  - Maternal exposure during pregnancy [Unknown]
  - Neural tube defect [Unknown]
  - Pulmonary arterial hypertension [Unknown]
  - Meningomyelocele [Unknown]
  - Intestinal malrotation [Unknown]
  - Vocal cord paralysis [Unknown]
